FAERS Safety Report 16263637 (Version 2)
Quarter: 2019Q2

REPORT INFORMATION
  Report Type: Spontaneous
  Country: TR (occurrence: TR)
  Receive Date: 20190502
  Receipt Date: 20190528
  Transmission Date: 20190711
  Serious: Yes (Other)
  Sender: FDA-Public Use
  Company Number: PHHY2019TR098532

PATIENT
  Age: 81 Year
  Sex: Male

DRUGS (1)
  1. CO-DIOVAN [Suspect]
     Active Substance: HYDROCHLOROTHIAZIDE\VALSARTAN
     Indication: HYPERTENSION
     Dosage: 1 DF, QD (IN THE MORNING)
     Route: 065

REACTIONS (3)
  - Heart rate decreased [Unknown]
  - Syncope [Unknown]
  - Blood pressure decreased [Unknown]
